FAERS Safety Report 5975927-X (Version None)
Quarter: 2008Q4

REPORT INFORMATION
  Report Type: 
  Country: None (occurrence: None)
  Receive Date: 20081202
  Receipt Date: 20081120
  Transmission Date: 20090506
  Serious: Yes (Death, Life-Threatening)
  Sender: FDA-Public Use
  Company Number: JP-ROCHE-594435

PATIENT
  Sex: Male
  Weight: 70 kg

DRUGS (16)
  1. PEGASYS [Suspect]
     Indication: HEPATITIS C
     Route: 058
     Dates: start: 20080627, end: 20080704
  2. PEGASYS [Suspect]
     Dosage: DOSE INCREASED
     Route: 058
     Dates: start: 20080711, end: 20080725
  3. PEGASYS [Suspect]
     Dosage: DOSE INCREASED
     Route: 058
     Dates: start: 20080801, end: 20080829
  4. PEGASYS [Suspect]
     Dosage: DOSE DECREASED
     Route: 058
     Dates: start: 20080905, end: 20080905
  5. PEGASYS [Suspect]
     Dosage: DOSE DECREASED
     Route: 058
     Dates: start: 20080912, end: 20080912
  6. PEGASYS [Suspect]
     Route: 058
     Dates: start: 20081003, end: 20081010
  7. PEGASYS [Suspect]
     Dosage: DOSE INCREASED
     Route: 058
     Dates: start: 20081017, end: 20081017
  8. CARDENALIN [Concomitant]
     Route: 048
     Dates: start: 20070329
  9. NORVASC [Concomitant]
     Route: 048
     Dates: start: 20070329
  10. GLUFAST [Concomitant]
     Route: 048
     Dates: start: 20070407
  11. URSO 250 [Concomitant]
     Route: 048
     Dates: start: 20070522
  12. BEZATOL SR [Concomitant]
     Dosage: FORM: SUSTAINED RELEASE TABLET
     Route: 048
     Dates: start: 20080711
  13. ZYLORIC [Concomitant]
     Route: 048
     Dates: start: 20080718
  14. LOCHOL [Concomitant]
     Route: 048
     Dates: start: 20080718, end: 20080911
  15. LOCHOL [Concomitant]
     Route: 048
     Dates: start: 20080912, end: 20080919
  16. EPADEL [Concomitant]
     Route: 048
     Dates: start: 20080808

REACTIONS (1)
  - IDIOPATHIC THROMBOCYTOPENIC PURPURA [None]
